FAERS Safety Report 7082655-9 (Version None)
Quarter: 2010Q4

REPORT INFORMATION
  Report Type: 
  Country: None (occurrence: None)
  Receive Date: 20101104
  Receipt Date: 20101026
  Transmission Date: 20110411
  Serious: Yes (Hospitalization, Other)
  Sender: FDA-Public Use
  Company Number: JP-ASTRAZENECA-2010SE49132

PATIENT
  Age: 31 Year
  Sex: Male

DRUGS (4)
  1. SEROQUEL [Suspect]
     Route: 048
  2. ARTANE [Concomitant]
     Route: 048
  3. HIRNAMIN [Concomitant]
     Route: 048
  4. SERENACE [Concomitant]
     Route: 065

REACTIONS (2)
  - BLOOD AMYLASE INCREASED [None]
  - INTENTIONAL OVERDOSE [None]
